FAERS Safety Report 7177432-4 (Version None)
Quarter: 2010Q4

REPORT INFORMATION
  Report Type: 
  Country: None (occurrence: None)
  Receive Date: 20101123
  Receipt Date: 20100823
  Transmission Date: 20110411
  Serious: No
  Sender: FDA-Public Use
  Company Number: 014675

PATIENT
  Sex: Female

DRUGS (2)
  1. CIMZIA [Suspect]
     Dosage: (SUBCUTANEOUS) (200 MG 1X/2 WEEKS SUBCUTANEOUS)
     Route: 058
     Dates: start: 20100408, end: 20100101
  2. CIMZIA [Suspect]
     Dosage: (SUBCUTANEOUS) (200 MG 1X/2 WEEKS SUBCUTANEOUS)
     Route: 058
     Dates: start: 20100819

REACTIONS (6)
  - CONTUSION [None]
  - DRUG INEFFECTIVE [None]
  - EAR INFECTION [None]
  - HEADACHE [None]
  - INJECTION SITE SWELLING [None]
  - SKELETAL INJURY [None]
